FAERS Safety Report 4721225-1 (Version None)
Quarter: 2005Q3

REPORT INFORMATION
  Report Type: 
  Country: None (occurrence: None)
  Receive Date: 20050720
  Receipt Date: 20050711
  Transmission Date: 20060218
  Serious: Yes (Other)
  Sender: FDA-Public Use
  Company Number: 2005-07-0604

PATIENT
  Age: 69 Year
  Sex: Female
  Weight: 67 kg

DRUGS (4)
  1. INTRON A [Suspect]
     Indication: HEPATITIS C
     Dosage: 6-3 MIU TIW SUBCUTANEOUS
     Route: 058
     Dates: start: 20020619, end: 20050216
  2. REBETOL [Suspect]
     Indication: HEPATITIS C
     Dosage: 600 ORAL
     Dates: start: 20020619, end: 20020809
  3. JUVELA [Concomitant]
  4. CINAL [Concomitant]

REACTIONS (5)
  - ANAEMIA [None]
  - ARRHYTHMIA SUPRAVENTRICULAR [None]
  - HYPERTHYROIDISM [None]
  - MALAISE [None]
  - PLATELET COUNT DECREASED [None]
